FAERS Safety Report 4581196-8 (Version None)
Quarter: 2005Q1

REPORT INFORMATION
  Report Type: 
  Country: None (occurrence: None)
  Receive Date: 20050214
  Receipt Date: 20040827
  Transmission Date: 20050727
  Serious: Yes (Other)
  Sender: FDA-Public Use
  Company Number: US-GLAXOSMITHKLINE-A0523791A

PATIENT
  Age: 42 Year
  Sex: Female

DRUGS (2)
  1. LAMICTAL [Suspect]
     Indication: BIPOLAR DISORDER
     Dosage: 100MG PER DAY
     Route: 048
     Dates: start: 20040101
  2. MECLIZINE [Suspect]
     Dates: start: 20040820

REACTIONS (4)
  - AFFECT LABILITY [None]
  - DIZZINESS [None]
  - DRUG INEFFECTIVE [None]
  - GRAND MAL CONVULSION [None]
